FAERS Safety Report 19137243 (Version 1)
Quarter: 2021Q2

REPORT INFORMATION
  Report Type: Spontaneous
  Country: US (occurrence: US)
  Receive Date: 20210415
  Receipt Date: 20210415
  Transmission Date: 20210717
  Serious: No
  Sender: FDA-Public Use
  Company Number: US-AMGEN-USASP2021053415

PATIENT
  Sex: Male

DRUGS (1)
  1. REPATHA [Suspect]
     Active Substance: EVOLOCUMAB
     Indication: BLOOD CHOLESTEROL INCREASED
     Dosage: UNK
     Route: 065

REACTIONS (6)
  - Dysphonia [Recovering/Resolving]
  - Swollen tongue [Recovering/Resolving]
  - Feeling abnormal [Recovering/Resolving]
  - Injection site erythema [Recovering/Resolving]
  - Tongue movement disturbance [Recovering/Resolving]
  - Rash papular [Recovering/Resolving]
